FAERS Safety Report 19373141 (Version 4)
Quarter: 2021Q3

REPORT INFORMATION
  Report Type: Spontaneous
  Country: US (occurrence: US)
  Receive Date: 20210604
  Receipt Date: 20210719
  Transmission Date: 20211014
  Serious: Yes (Hospitalization, Other)
  Sender: FDA-Public Use
  Company Number: US-TELIGENT, INC-20210500050

PATIENT

DRUGS (6)
  1. LISINOPRIL. [Concomitant]
     Active Substance: LISINOPRIL
     Dosage: 40 MILLIGRAM
  2. ATENOLOL. [Concomitant]
     Active Substance: ATENOLOL
     Dosage: 100 MILLIGRAM
  3. CLOBETASOL PROPIONATE. [Suspect]
     Active Substance: CLOBETASOL PROPIONATE
     Indication: ORAL DISORDER
  4. SERTRALINE [Concomitant]
     Active Substance: SERTRALINE HYDROCHLORIDE
     Dosage: 150 MILLIGRAM
  5. CLOZAPINE. [Concomitant]
     Active Substance: CLOZAPINE
     Indication: SEIZURE
     Dosage: 0.85 MILLIGRAM
  6. CLOBETASOL PROPIONATE. [Suspect]
     Active Substance: CLOBETASOL PROPIONATE
     Indication: ORAL MUCOSA EROSION
     Dosage: UNK
     Route: 061
     Dates: start: 202105, end: 202105

REACTIONS (15)
  - Dyspnoea [Unknown]
  - Pharyngeal swelling [Recovered/Resolved]
  - Wrong technique in product usage process [Unknown]
  - Tongue exfoliation [Unknown]
  - Oral infection [Recovered/Resolved]
  - Swelling face [Recovered/Resolved]
  - Lip swelling [Recovered/Resolved]
  - Hypertension [Unknown]
  - Thirst [Unknown]
  - Skin infection [Unknown]
  - Glossodynia [Unknown]
  - Feeling abnormal [Recovered/Resolved]
  - Rash pustular [Unknown]
  - Oral disorder [Unknown]
  - Tooth loss [Unknown]

NARRATIVE: CASE EVENT DATE: 20210512
